FAERS Safety Report 6572178-5 (Version None)
Quarter: 2010Q1

REPORT INFORMATION
  Report Type: 
  Country: None (occurrence: None)
  Receive Date: 20100205
  Receipt Date: 20100125
  Transmission Date: 20100710
  Serious: Yes (Hospitalization)
  Sender: FDA-Public Use
  Company Number: B0630885A

PATIENT
  Age: 24 Year
  Sex: Female

DRUGS (2)
  1. PAROXETINE HCL [Suspect]
     Indication: OBSESSIVE-COMPULSIVE DISORDER
     Dosage: 800MG PER DAY
     Route: 048
  2. ALPRAZOLAM [Suspect]
     Indication: OBSESSIVE-COMPULSIVE DISORDER
     Dosage: 100MG PER DAY
     Route: 048

REACTIONS (9)
  - CLONUS [None]
  - DIZZINESS [None]
  - DRY SKIN [None]
  - MUCOSAL DRYNESS [None]
  - OVERDOSE [None]
  - SEROTONIN SYNDROME [None]
  - SINUS TACHYCARDIA [None]
  - SUICIDE ATTEMPT [None]
  - TREMOR [None]
